FAERS Safety Report 25529626 (Version 2)
Quarter: 2025Q3

REPORT INFORMATION
  Report Type: Spontaneous
  Country: EU (occurrence: EU)
  Receive Date: 20250708
  Receipt Date: 20250729
  Transmission Date: 20251021
  Serious: No
  Sender: SANOFI AVENTIS
  Company Number: EU-SA-2024SA356351

PATIENT
  Age: 43 Year
  Sex: Female
  Weight: 71.5 kg

DRUGS (5)
  1. DUPIXENT [Suspect]
     Active Substance: DUPILUMAB
     Dosage: 300 MG, QOW
     Dates: start: 20240404
  2. Pregnavit [Concomitant]
     Indication: Folate deficiency
     Dates: start: 20241014
  3. EUTHYROX [Concomitant]
     Active Substance: LEVOTHYROXINE SODIUM
     Dosage: 100 MG, QD (FOR 5 YEARS)
     Dates: start: 20220701
  4. Femibion [Concomitant]
     Dosage: QD
     Dates: start: 20250522
  5. MINERALS\VITAMINS [Concomitant]
     Active Substance: MINERALS\VITAMINS
     Dosage: QD
     Dates: start: 20240915, end: 20250520

REACTIONS (2)
  - Hepatic enzyme increased [Unknown]
  - Maternal exposure during pregnancy [Unknown]

NARRATIVE: CASE EVENT DATE: 20240101
